FAERS Safety Report 15555077 (Version 1)
Quarter: 2018Q4

REPORT INFORMATION
  Report Type: Report from Study
  Country: CH (occurrence: CH)
  Receive Date: 20181026
  Receipt Date: 20181026
  Transmission Date: 20190205
  Serious: Yes (Hospitalization)
  Sender: FDA-Public Use
  Company Number: CH-EMD SERONO-E2B_90053225

PATIENT
  Age: 66 Year
  Sex: Male
  Weight: 79 kg

DRUGS (5)
  1. ESOMEPRAZOL /01479301/ [Concomitant]
     Active Substance: ESOMEPRAZOLE
     Indication: PROPHYLAXIS
     Dosage: 20 MG, DAILY (QD)
     Route: 048
     Dates: start: 20180717
  2. METAMIZOL /06276704/ [Concomitant]
     Active Substance: METAMIZOLE SODIUM
     Indication: PAIN
     Dosage: 0.5 G/ML, AS NEEDED
     Route: 048
     Dates: start: 20180717
  3. DUROGESIC MATRIX [Concomitant]
     Active Substance: FENTANYL
     Indication: PAIN
     Dosage: 50 UG/H, EVERY 3 DAYS
     Route: 061
     Dates: start: 20180717
  4. CISPLATIN. [Suspect]
     Active Substance: CISPLATIN
     Indication: SQUAMOUS CELL CARCINOMA OF HEAD AND NECK
     Dosage: UNK, (DAYS 1, 22, 43 OF CRT PHASE)
     Route: 041
     Dates: start: 20180307, end: 20180425
  5. AVELUMAB [Suspect]
     Active Substance: AVELUMAB
     Indication: SQUAMOUS CELL CARCINOMA OF HEAD AND NECK
     Dosage: 705 MG, CYCLIC (DAY1 OF LEAD-IN PHASE:D 8,25,39 OF CRT PHASE:EVERY 2 WEEKS DURING MAINTENANCE PHASE)
     Route: 041
     Dates: start: 20180228, end: 20180717

REACTIONS (1)
  - Laryngeal oedema [Recovered/Resolved]

NARRATIVE: CASE EVENT DATE: 20180717
